FAERS Safety Report 6813743-7 (Version None)
Quarter: 2010Q3

REPORT INFORMATION
  Report Type: 
  Country: None (occurrence: None)
  Receive Date: 20100701
  Receipt Date: 20100625
  Transmission Date: 20110219
  Serious: Yes (Hospitalization, Disabling)
  Sender: FDA-Public Use
  Company Number: US-MERCK-1005USA02872

PATIENT
  Age: 73 Year
  Sex: Female

DRUGS (1)
  1. COZAAR [Suspect]
     Indication: CARDIAC DISORDER
     Route: 048

REACTIONS (1)
  - CONFUSIONAL STATE [None]
